FAERS Safety Report 20107318 (Version 1)
Quarter: 2021Q4

REPORT INFORMATION
  Report Type: Spontaneous
  Country: US (occurrence: US)
  Receive Date: 20211124
  Receipt Date: 20211124
  Transmission Date: 20220303
  Serious: Yes (Other)
  Sender: FDA-Public Use
  Company Number: US-NOVARTISTESTPH-NVSC2021US264559

PATIENT
  Sex: Male

DRUGS (7)
  1. DOCETAXEL [Suspect]
     Active Substance: DOCETAXEL
     Indication: Metastases to bone
     Dosage: UNK
     Route: 065
     Dates: start: 2021
  2. ABIRATERONE. [Suspect]
     Active Substance: ABIRATERONE ACETATE
     Indication: Product used for unknown indication
     Dosage: UNK
     Route: 065
     Dates: start: 2021
  3. JEVTANA [Suspect]
     Active Substance: CABAZITAXEL
     Indication: Product used for unknown indication
     Dosage: 20 MG/M2
     Route: 065
     Dates: start: 2021
  4. LUPRON [Suspect]
     Active Substance: LEUPROLIDE ACETATE
     Indication: Product used for unknown indication
     Dosage: UNK
     Route: 065
     Dates: start: 2021
  5. APALUTAMIDE [Suspect]
     Active Substance: APALUTAMIDE
     Indication: Product used for unknown indication
     Dosage: UNK
     Route: 065
  6. XOFIGO [Suspect]
     Active Substance: RADIUM RA-223 DICHLORIDE
     Indication: Product used for unknown indication
     Dosage: UNK
     Route: 065
     Dates: start: 2021
  7. PREDNISOLONE [Suspect]
     Active Substance: PREDNISOLONE

REACTIONS (3)
  - Prostate cancer metastatic [Unknown]
  - Neuropathy peripheral [Unknown]
  - Product dose omission issue [Unknown]
